FAERS Safety Report 14518771 (Version 3)
Quarter: 2018Q3

REPORT INFORMATION
  Report Type: Spontaneous
  Country: US (occurrence: US)
  Receive Date: 20180212
  Receipt Date: 20180723
  Transmission Date: 20181010
  Serious: No
  Sender: FDA-Public Use
  Company Number: US-BIOGEN-2018BI00521399

PATIENT
  Sex: Female

DRUGS (2)
  1. TECFIDERA [Suspect]
     Active Substance: DIMETHYL FUMARATE
     Indication: MULTIPLE SCLEROSIS
     Route: 065
     Dates: start: 20140715
  2. TECFIDERA [Suspect]
     Active Substance: DIMETHYL FUMARATE
     Route: 065
     Dates: start: 20160914

REACTIONS (4)
  - Fatigue [Unknown]
  - Oropharyngeal pain [Unknown]
  - Aphasia [Unknown]
  - Malaise [Unknown]
